FAERS Safety Report 25673387 (Version 1)
Quarter: 2025Q3

REPORT INFORMATION
  Report Type: Spontaneous
  Country: US (occurrence: US)
  Receive Date: 20250813
  Receipt Date: 20250813
  Transmission Date: 20251021
  Serious: No
  Sender: SANDOZ
  Company Number: US-SANDOZ-SDZ2025US057871

PATIENT
  Age: 50 Year
  Sex: Female
  Weight: 72.562 kg

DRUGS (1)
  1. COMBIPATCH [Suspect]
     Active Substance: ESTRADIOL\NORETHINDRONE ACETATE
     Indication: Hormone replacement therapy
     Route: 062
     Dates: start: 2025

REACTIONS (7)
  - Hot flush [Not Recovered/Not Resolved]
  - Irritability [Not Recovered/Not Resolved]
  - Night sweats [Not Recovered/Not Resolved]
  - Unevaluable event [Not Recovered/Not Resolved]
  - Product adhesion issue [Not Recovered/Not Resolved]
  - Device issue [Not Recovered/Not Resolved]
  - Product ineffective [Not Recovered/Not Resolved]

NARRATIVE: CASE EVENT DATE: 20250101
